FAERS Safety Report 22196541 (Version 4)
Quarter: 2025Q1

REPORT INFORMATION
  Report Type: Spontaneous
  Country: DE (occurrence: DE)
  Receive Date: 20230411
  Receipt Date: 20250107
  Transmission Date: 20250408
  Serious: Yes (Hospitalization, Other)
  Sender: AUROBINDO
  Company Number: DE-BoehringerIngelheim-2023-BI-226401

PATIENT
  Age: 37 Year
  Sex: Male

DRUGS (9)
  1. NEVIRAPINE [Suspect]
     Active Substance: NEVIRAPINE
     Indication: HIV infection
     Route: 065
  2. NEVIRAPINE [Suspect]
     Active Substance: NEVIRAPINE
     Indication: Antiretroviral therapy
  3. ZIDOVUDINE [Suspect]
     Active Substance: ZIDOVUDINE
     Indication: HIV infection
     Route: 065
  4. ZIDOVUDINE [Suspect]
     Active Substance: ZIDOVUDINE
     Indication: Cytomegalovirus viraemia
  5. ZIDOVUDINE [Suspect]
     Active Substance: ZIDOVUDINE
     Indication: Antiretroviral therapy
  6. DOLUTEGRAVIR [Suspect]
     Active Substance: DOLUTEGRAVIR
     Indication: HIV infection
     Route: 065
  7. DOLUTEGRAVIR [Suspect]
     Active Substance: DOLUTEGRAVIR
     Indication: Antiretroviral therapy
  8. GANCICLOVIR [Concomitant]
     Active Substance: GANCICLOVIR
     Indication: HIV infection
     Dosage: 5 MILLIGRAM/KILOGRAM, TWO TIMES A DAY
     Route: 042
  9. GANCICLOVIR [Concomitant]
     Active Substance: GANCICLOVIR
     Indication: Cytomegalovirus viraemia
     Dosage: 10 MILLIGRAM/KILOGRAM, ONCE A DAY
     Route: 042

REACTIONS (14)
  - Cytomegalovirus viraemia [Recovering/Resolving]
  - Macular oedema [Recovered/Resolved]
  - Cytomegalovirus chorioretinitis [Recovering/Resolving]
  - Retinal vasculitis [Recovering/Resolving]
  - Immune recovery uveitis [Recovering/Resolving]
  - Blindness unilateral [Recovering/Resolving]
  - Retinal haemorrhage [Recovering/Resolving]
  - Cytomegalovirus infection reactivation [Recovering/Resolving]
  - Retinal oedema [Recovered/Resolved]
  - Immune reconstitution inflammatory syndrome [Recovering/Resolving]
  - Retinal perivascular sheathing [Recovering/Resolving]
  - Visual impairment [Recovering/Resolving]
  - Photophobia [Recovering/Resolving]
  - Headache [Recovering/Resolving]
